FAERS Safety Report 21706402 (Version 1)
Quarter: 2022Q4

REPORT INFORMATION
  Report Type: Spontaneous
  Country: IL (occurrence: IL)
  Receive Date: 20221209
  Receipt Date: 20221209
  Transmission Date: 20230112
  Serious: Yes (Other)
  Sender: FDA-Public Use
  Company Number: IL-009507513-2212ISR002926

PATIENT
  Age: 67 Year
  Sex: Male

DRUGS (8)
  1. KEYTRUDA [Suspect]
     Active Substance: PEMBROLIZUMAB
     Dosage: 200MG EVERY 3 WEEKS
     Dates: start: 20180820
  2. BISOPROLOL [Concomitant]
     Active Substance: BISOPROLOL
  3. DUTASTERIDE\TAMSULOSIN [Concomitant]
     Active Substance: DUTASTERIDE\TAMSULOSIN
  4. SIMVASTATIN [Concomitant]
     Active Substance: SIMVASTATIN
  5. RAMIPRIL [Concomitant]
     Active Substance: RAMIPRIL
  6. ASPIRIN [Concomitant]
     Active Substance: ASPIRIN
  7. METFORMIN HYDROCHLORIDE [Concomitant]
     Active Substance: METFORMIN HYDROCHLORIDE
  8. AMLOW [AMLODIPINE BESILATE] [Concomitant]

REACTIONS (2)
  - Melanoma recurrent [Unknown]
  - Lymphadenopathy [Unknown]

NARRATIVE: CASE EVENT DATE: 20190131
